FAERS Safety Report 20245058 (Version 1)
Quarter: 2021Q4

REPORT INFORMATION
  Report Type: Spontaneous
  Country: US (occurrence: US)
  Receive Date: 20211229
  Receipt Date: 20211229
  Transmission Date: 20220303
  Serious: No
  Sender: FDA-Public Use
  Company Number: US-STRIDES ARCOLAB LIMITED-2021SP000298

PATIENT
  Age: 44 Year
  Sex: Female

DRUGS (6)
  1. ACETAZOLAMIDE [Suspect]
     Active Substance: ACETAZOLAMIDE
     Indication: Hyperphosphataemia
     Dosage: UNK
     Route: 065
  2. CALCITONIN [Suspect]
     Active Substance: CALCITONIN
     Indication: Hyperphosphataemia
     Dosage: UNK
     Route: 065
  3. PHYTONADIONE [Suspect]
     Active Substance: PHYTONADIONE
     Indication: Hyperphosphataemia
     Dosage: UNK
     Route: 065
  4. SEVELAMER [Suspect]
     Active Substance: SEVELAMER
     Indication: Hyperphosphataemia
     Dosage: UNK
     Route: 065
  5. FUTIBATINIB [Concomitant]
     Active Substance: FUTIBATINIB
     Indication: Cholangiocarcinoma
     Dosage: UNK
     Route: 065
  6. FUTIBATINIB [Concomitant]
     Active Substance: FUTIBATINIB
     Dosage: UNK, DOSE REDUCED
     Route: 065

REACTIONS (1)
  - Drug ineffective for unapproved indication [Unknown]
